FAERS Safety Report 8392531-7 (Version None)
Quarter: 2012Q2

REPORT INFORMATION
  Report Type: 
  Country: None (occurrence: None)
  Receive Date: 20120529
  Receipt Date: 20120518
  Transmission Date: 20120825
  Serious: Yes (Hospitalization, Disabling, Other)
  Sender: FDA-Public Use
  Company Number: US-MERCK-1111USA00988

PATIENT
  Age: 54 Year
  Sex: Female
  Weight: 65 kg

DRUGS (15)
  1. PREDNISONE [Concomitant]
     Route: 065
  2. AZULFIDINE [Concomitant]
     Route: 065
  3. MIACALCIN [Concomitant]
     Route: 065
  4. PEPCID [Concomitant]
     Route: 065
  5. FOSAMAX PLUS D [Suspect]
     Indication: OSTEOPOROSIS
     Route: 048
     Dates: start: 20071201
  6. VITAMINS (UNSPECIFIED) [Concomitant]
     Indication: ROUTINE HEALTH MAINTENANCE
     Route: 065
     Dates: start: 19950101
  7. CALCIUM (UNSPECIFIED) [Concomitant]
     Route: 065
  8. THYROID [Concomitant]
     Route: 065
  9. FOSAMAX [Suspect]
     Indication: OSTEOPOROSIS
     Route: 048
     Dates: start: 19970101, end: 20001101
  10. ALENDRONATE SODIUM [Suspect]
     Indication: OSTEOPOROSIS
     Route: 048
     Dates: start: 20090401
  11. [THERAPY UNSPECIFIED] [Concomitant]
     Indication: STEROID THERAPY
     Route: 065
     Dates: start: 19740101
  12. IRON (UNSPECIFIED) [Concomitant]
     Route: 065
  13. FOSAMAX [Suspect]
     Route: 048
     Dates: start: 20001101, end: 20071101
  14. CELEBREX [Concomitant]
     Route: 065
  15. ASACOL [Concomitant]
     Route: 065

REACTIONS (29)
  - LOW TURNOVER OSTEOPATHY [None]
  - SWELLING [None]
  - FOREIGN BODY [None]
  - DEVICE DISLOCATION [None]
  - PRURITUS [None]
  - CROHN'S DISEASE [None]
  - DECREASED APPETITE [None]
  - URINARY TRACT INFECTION [None]
  - HYPOTHYROIDISM [None]
  - FEMUR FRACTURE [None]
  - MUSCULOSKELETAL DISORDER [None]
  - DEFORMITY [None]
  - BODY HEIGHT DECREASED [None]
  - ANAEMIA [None]
  - FRACTURE NONUNION [None]
  - GALLBLADDER DISORDER [None]
  - OSTEOPENIA [None]
  - MASS [None]
  - ACETABULUM FRACTURE [None]
  - HYPERLIPIDAEMIA [None]
  - FRACTURE MALUNION [None]
  - SYNOVITIS [None]
  - CHRONIC LYMPHOCYTIC LEUKAEMIA [None]
  - DEVICE FAILURE [None]
  - ENTERITIS [None]
  - URTICARIA [None]
  - RASH [None]
  - DRUG INEFFECTIVE [None]
  - DEPRESSION [None]
